FAERS Safety Report 5129224-5 (Version None)
Quarter: 2006Q4

REPORT INFORMATION
  Report Type: 
  Country: None (occurrence: None)
  Receive Date: 20061011
  Receipt Date: 20060922
  Transmission Date: 20070319
  Serious: Yes (Hospitalization)
  Sender: FDA-Public Use
  Company Number: BE200609006353

PATIENT
  Age: 12 Year
  Sex: Male
  Weight: 30 kg

DRUGS (1)
  1. BAZ-MC-LYBX COMORBID ODD IN PEDS (ATOMOXETINE HYDROCHLORIDE)CAPSULE [Suspect]
     Indication: ATTENTION DEFICIT/HYPERACTIVITY DISORDER
     Dosage: 45 MG, UNKNOWN, ORAL
     Route: 048
     Dates: start: 20040302

REACTIONS (1)
  - SYNCOPE [None]
